FAERS Safety Report 12738738 (Version 1)
Quarter: 2016Q3

REPORT INFORMATION
  Report Type: Spontaneous
  Country: ZA (occurrence: ZA)
  Receive Date: 20160912
  Receipt Date: 20160912
  Transmission Date: 20161109
  Serious: Yes (Other)
  Sender: FDA-Public Use
  Company Number: ALCN2016ZA006253

PATIENT

DRUGS (1)
  1. DURATEARS [Suspect]
     Active Substance: MINERAL OIL EMULSION\PETROLATUM
     Indication: INTRAOCULAR PRESSURE INCREASED
     Dosage: UNK
     Route: 047

REACTIONS (2)
  - Drug dispensing error [Unknown]
  - Intraocular pressure increased [Unknown]
